FAERS Safety Report 8059241-7 (Version None)
Quarter: 2012Q1

REPORT INFORMATION
  Report Type: 
  Country: None (occurrence: None)
  Receive Date: 20120112
  Receipt Date: 20120103
  Transmission Date: 20120608
  Serious: Yes (Hospitalization)
  Sender: FDA-Public Use
  Company Number: 1000026758

PATIENT
  Age: 84 Year
  Sex: Male
  Weight: 58 kg

DRUGS (3)
  1. EFFERALGAN (PARACETAMOL) (PARACETAMOL) [Concomitant]
  2. ESCITALOPRAM [Concomitant]
  3. MEMANTINE HYDROCHLORIDE [Suspect]
     Indication: COGNITIVE DISORDER
     Dosage: 20 MG (20 MG, 1 IN 1 D)
     Dates: end: 20111206

REACTIONS (3)
  - SOMNOLENCE [None]
  - APATHY [None]
  - DISTURBANCE IN ATTENTION [None]
